FAERS Safety Report 21964296 (Version 1)
Quarter: 2023Q1

REPORT INFORMATION
  Report Type: Report from Study
  Country: CA (occurrence: CA)
  Receive Date: 20230207
  Receipt Date: 20230207
  Transmission Date: 20230418
  Serious: Yes (Other)
  Sender: FDA-Public Use
  Company Number: CA-BAUSCH-BL-2022-023176

PATIENT
  Sex: Female

DRUGS (5)
  1. CONTRAVE [Suspect]
     Active Substance: BUPROPION HYDROCHLORIDE\NALTREXONE HYDROCHLORIDE
     Indication: Weight control
     Dosage: 90/8 MG, 1 TAB DAILY
     Route: 048
     Dates: start: 20220913, end: 20220919
  2. CONTRAVE [Suspect]
     Active Substance: BUPROPION HYDROCHLORIDE\NALTREXONE HYDROCHLORIDE
     Dosage: 90/8 MG, 1 TAB BID
     Route: 048
     Dates: start: 20220920, end: 20220926
  3. CONTRAVE [Suspect]
     Active Substance: BUPROPION HYDROCHLORIDE\NALTREXONE HYDROCHLORIDE
     Dosage: 90/8 MG, 2 TABS AM, 1 TAB PM
     Route: 048
     Dates: start: 20220927, end: 20221003
  4. CONTRAVE [Suspect]
     Active Substance: BUPROPION HYDROCHLORIDE\NALTREXONE HYDROCHLORIDE
     Dosage: 90/8 MG, 2 TABS BID
     Route: 048
     Dates: start: 20221004, end: 202210
  5. CONTRAVE [Suspect]
     Active Substance: BUPROPION HYDROCHLORIDE\NALTREXONE HYDROCHLORIDE
     Dosage: 90/8 MG, 1 TAB BID, STOPPED
     Route: 048
     Dates: start: 202210, end: 20221106

REACTIONS (6)
  - Blood pressure increased [Recovering/Resolving]
  - Decreased appetite [Unknown]
  - Nightmare [Recovered/Resolved]
  - Flushing [Recovering/Resolving]
  - Therapy cessation [Unknown]
  - Drug titration error [Unknown]

NARRATIVE: CASE EVENT DATE: 20220101
